FAERS Safety Report 12774596 (Version 1)
Quarter: 2016Q3

REPORT INFORMATION
  Report Type: Not Available
  Country: IT (occurrence: IT)
  Receive Date: 20160923
  Receipt Date: 20160923
  Transmission Date: 20161109
  Serious: Yes (Hospitalization)
  Sender: FDA-Public Use
  Company Number: IT-SYNTHON BV-NL01PV16_41926

PATIENT
  Age: 68 Year
  Sex: Male

DRUGS (10)
  1. AMITRIPTILINA [Suspect]
     Active Substance: AMITRIPTYLINE HYDROCHLORIDE
     Dosage: TOTAL
     Route: 048
     Dates: start: 20130124, end: 20130124
  2. CYMBALTA [Suspect]
     Active Substance: DULOXETINE HYDROCHLORIDE
     Dosage: TOTAL
     Route: 048
     Dates: start: 20130124, end: 20130124
  3. SULAMID [Concomitant]
     Active Substance: AMISULPRIDE
     Dosage: UNK
     Route: 048
  4. ANAFRANIL [Concomitant]
     Active Substance: CLOMIPRAMINE HYDROCHLORIDE
     Dosage: UNK
     Route: 048
  5. DAPAROX [Suspect]
     Active Substance: PAROXETINE HYDROCHLORIDE
     Dosage: TOTAL
     Route: 048
     Dates: start: 20130124, end: 20130124
  6. ZOLPIDEM [Suspect]
     Active Substance: ZOLPIDEM\ZOLPIDEM TARTRATE
     Dosage: TOTAL
     Route: 048
     Dates: start: 20130124, end: 20130124
  7. PROZIN                             /00011902/ [Suspect]
     Active Substance: CHLORPROMAZINE HYDROCHLORIDE
     Dosage: TOTAL
     Route: 048
     Dates: start: 20130124, end: 20130124
  8. EN [Suspect]
     Active Substance: DELORAZEPAM
     Dosage: TOTAL
     Route: 048
     Dates: start: 20130124, end: 20130124
  9. ZESTORETIC [Concomitant]
     Active Substance: HYDROCHLOROTHIAZIDE\LISINOPRIL
     Dosage: UNK
     Route: 048
  10. LOBIVON [Concomitant]
     Active Substance: NEBIVOLOL HYDROCHLORIDE
     Dosage: UNK
     Route: 048

REACTIONS (5)
  - Bradycardia [Recovered/Resolved]
  - Drug abuse [Recovered/Resolved]
  - Sopor [Recovered/Resolved]
  - Depressed level of consciousness [Recovered/Resolved]
  - Suicide attempt [Recovered/Resolved]

NARRATIVE: CASE EVENT DATE: 20130124
